FAERS Safety Report 9764663 (Version 2)
Quarter: 2014Q1

REPORT INFORMATION
  Report Type: Report from Study
  Country: JP (occurrence: JP)
  Receive Date: 20131217
  Receipt Date: 20140116
  Transmission Date: 20141002
  Serious: Yes (Death)
  Sender: FDA-Public Use
  Company Number: JP-SA-2013SA130166

PATIENT
  Age: 77 Year
  Sex: Male
  Weight: 51 kg

DRUGS (3)
  1. PLAVIX [Suspect]
     Indication: PERIPHERAL ARTERIAL OCCLUSIVE DISEASE
     Route: 048
     Dates: start: 20130929, end: 20131020
  2. TAKEPRON OD [Concomitant]
     Indication: PROPHYLAXIS
     Route: 048
     Dates: start: 20121010, end: 20131020
  3. LASIX [Concomitant]
     Indication: PROPHYLAXIS
     Route: 048
     Dates: start: 20121010, end: 20131020

REACTIONS (1)
  - Sudden death [Fatal]
